FAERS Safety Report 14659966 (Version 2)
Quarter: 2018Q2

REPORT INFORMATION
  Report Type: Spontaneous
  Country: US (occurrence: US)
  Receive Date: 20180320
  Receipt Date: 20180418
  Transmission Date: 20180711
  Serious: Yes (Other)
  Sender: FDA-Public Use
  Company Number: US-IPSEN BIOPHARMACEUTICALS, INC.-2018-03989

PATIENT
  Sex: Female

DRUGS (10)
  1. SENSIPAR [Concomitant]
     Active Substance: CINACALCET HYDROCHLORIDE
  2. VITAMIN D3 [Concomitant]
     Active Substance: CHOLECALCIFEROL
  3. SOMATULINE [Suspect]
     Active Substance: LANREOTIDE ACETATE
     Indication: PANCREATIC NEUROENDOCRINE TUMOUR
     Dosage: 120 MG
     Route: 058
     Dates: start: 201709
  4. MELATONIN [Concomitant]
     Active Substance: MELATONIN
  5. METOPROLOL. [Concomitant]
     Active Substance: METOPROLOL
  6. AMLODIPINE [Concomitant]
     Active Substance: AMLODIPINE BESYLATE
  7. CHLORTHALIDONE. [Concomitant]
     Active Substance: CHLORTHALIDONE
  8. SANDOSTATIN [Concomitant]
     Active Substance: OCTREOTIDE ACETATE
     Route: 058
  9. VENLAFAXINE [Concomitant]
     Active Substance: VENLAFAXINE HYDROCHLORIDE
  10. VITAMIN C [Concomitant]
     Active Substance: ASCORBIC ACID

REACTIONS (4)
  - Injection site mass [Unknown]
  - Injection site rash [Unknown]
  - Injection site pruritus [Unknown]
  - Malignant neoplasm progression [Unknown]

NARRATIVE: CASE EVENT DATE: 2018
